FAERS Safety Report 16221770 (Version 2)
Quarter: 2019Q3

REPORT INFORMATION
  Report Type: Spontaneous
  Country: US (occurrence: US)
  Receive Date: 20190422
  Receipt Date: 20190905
  Transmission Date: 20191004
  Serious: Yes (Hospitalization, Other)
  Sender: FDA-Public Use
  Company Number: US-BIOGEN-2019BI00725991

PATIENT
  Sex: Female

DRUGS (2)
  1. TYSABRI [Suspect]
     Active Substance: NATALIZUMAB
     Indication: MULTIPLE SCLEROSIS
     Route: 065
     Dates: start: 20131118, end: 20170508
  2. TYSABRI [Suspect]
     Active Substance: NATALIZUMAB
     Route: 042
     Dates: start: 20180223, end: 20180223

REACTIONS (8)
  - Hypoaesthesia [Unknown]
  - Dizziness [Recovered/Resolved]
  - Tenderness [Unknown]
  - Hypertension [Unknown]
  - Thyroid disorder [Unknown]
  - Pneumonia [Unknown]
  - Oesophageal disorder [Unknown]
  - Sarcoidosis [Unknown]
